FAERS Safety Report 22598007 (Version 2)
Quarter: 2025Q1

REPORT INFORMATION
  Report Type: Other
  Country: ES (occurrence: ES)
  Receive Date: 20230614
  Receipt Date: 20250329
  Transmission Date: 20250408
  Serious: Yes (Hospitalization)
  Sender: ZYDUS PHARM
  Company Number: None

PATIENT

DRUGS (3)
  1. TRAMADOL [Suspect]
     Active Substance: TRAMADOL
     Indication: Back pain
     Route: 048
     Dates: start: 20220517, end: 20220520
  2. MORPHINE [Suspect]
     Active Substance: MORPHINE
     Indication: Back pain
     Route: 058
     Dates: start: 20220516, end: 20220520
  3. MEPERIDINE HYDROCHLORIDE [Suspect]
     Active Substance: MEPERIDINE HYDROCHLORIDE
     Indication: Back pain
     Route: 042
     Dates: start: 20220514, end: 20220517

REACTIONS (1)
  - Brain stem syndrome [Recovering/Resolving]

NARRATIVE: CASE EVENT DATE: 20220519
